FAERS Safety Report 6482906-5 (Version None)
Quarter: 2009Q4

REPORT INFORMATION
  Report Type: 
  Country: None (occurrence: None)
  Receive Date: 20091209
  Receipt Date: 20091028
  Transmission Date: 20100525
  Serious: No
  Sender: FDA-Public Use
  Company Number: US-AMGEN-KDL371811

PATIENT
  Sex: Female

DRUGS (1)
  1. ENBREL [Suspect]
     Indication: RHEUMATOID ARTHRITIS
     Route: 058
     Dates: start: 20090101

REACTIONS (4)
  - INCORRECT STORAGE OF DRUG [None]
  - MUSCULOSKELETAL STIFFNESS [None]
  - PAIN [None]
  - THERAPEUTIC RESPONSE DECREASED [None]
